FAERS Safety Report 13331445 (Version 1)
Quarter: 2017Q1

REPORT INFORMATION
  Report Type: Spontaneous
  Country: US (occurrence: US)
  Receive Date: 20170314
  Receipt Date: 20170314
  Transmission Date: 20170428
  Serious: No
  Sender: FDA-Public Use
  Company Number: US-JNJFOC-20170209055

PATIENT
  Age: 13 Year
  Sex: Female
  Weight: 49.9 kg

DRUGS (2)
  1. MOTRIN [Suspect]
     Active Substance: IBUPROFEN
     Indication: SINUS DISORDER
     Dosage: 2 PER DAY FOR 2 DAYS
     Route: 048
     Dates: start: 20170205, end: 20170206
  2. MOTRIN [Suspect]
     Active Substance: IBUPROFEN
     Route: 048

REACTIONS (2)
  - Product use issue [Unknown]
  - Sinus disorder [Unknown]

NARRATIVE: CASE EVENT DATE: 201702
